FAERS Safety Report 8597851-9 (Version None)
Quarter: 2012Q3

REPORT INFORMATION
  Report Type: 
  Country: None (occurrence: None)
  Receive Date: 20120816
  Receipt Date: 20120814
  Transmission Date: 20120928
  Serious: Yes (Hospitalization, Other)
  Sender: FDA-Public Use
  Company Number: PHEH2007US016484

PATIENT
  Sex: Female
  Weight: 56.689 kg

DRUGS (99)
  1. PAXIL [Concomitant]
     Dosage: 30 MG
     Dates: start: 20061115, end: 20061121
  2. COREG [Concomitant]
     Dosage: 6.25 MG QAM
  3. NEXIUM [Concomitant]
     Dosage: 40 MG QAM
  4. CYTOMEL [Concomitant]
  5. FLONASE [Concomitant]
  6. NEUPOGEN [Concomitant]
     Dosage: 960 UG, QD
     Dates: start: 20071201
  7. FLUCONAZOLE [Concomitant]
     Dosage: 200 MG
  8. TERAZOSIN HYDROCHLORIDE [Concomitant]
     Dosage: 5 MG
  9. LANOXIN [Concomitant]
     Dosage: 0.125 MG, QD
  10. LANTUS [Concomitant]
  11. ZOMETA [Suspect]
     Indication: MULTIPLE MYELOMA
     Dates: start: 20070501
  12. FOSAMAX [Suspect]
  13. PAXIL [Concomitant]
     Dosage: 40 MG
     Dates: end: 20060926
  14. CELEXA [Concomitant]
  15. LAXATIVES [Concomitant]
  16. HYTRIN [Concomitant]
     Dosage: 5 MG
  17. TRAZODONE HYDROCHLORIDE [Concomitant]
  18. PAROXETINE [Concomitant]
  19. CITALOPRAM [Concomitant]
     Dosage: 60 MG
     Route: 048
     Dates: end: 20071204
  20. MELPHALAN HYDROCHLORIDE [Concomitant]
  21. BUPROPION HYDROCHLORIDE [Concomitant]
     Dosage: 200 MG
  22. DOXYCYCLINE HYCLATE [Concomitant]
     Dosage: 100 MG
  23. CELEBREX [Concomitant]
     Dosage: 200 MG
  24. IBUPROFEN [Concomitant]
     Dosage: 800 MG
  25. CEPHALEXIN [Concomitant]
     Dosage: 500 MG
  26. CIPROFLOXACIN [Concomitant]
  27. COLACE [Concomitant]
  28. PROMETRIUM [Concomitant]
     Dosage: 100 MG
  29. WELLBUTRIN SR [Concomitant]
  30. ASTELIN [Concomitant]
  31. QVAR 40 [Concomitant]
     Dosage: 40 UG
  32. ZANAFLEX [Concomitant]
     Dosage: 4 MG
  33. REVLIMID [Concomitant]
  34. VELCADE [Concomitant]
  35. MELOXICAM [Concomitant]
     Dosage: 15 MG
  36. PENICILLIN V POTASSIUM [Concomitant]
     Dosage: 500 MG
  37. TRAMADOL HCL [Concomitant]
     Dosage: 50 MG
  38. PAXIL [Concomitant]
     Dosage: 60 MG, QD
     Dates: start: 20060927, end: 20061114
  39. ZOCOR [Concomitant]
     Dosage: 80 MG, QD
     Dates: start: 20030101
  40. MOBIC [Concomitant]
     Dosage: 15 MG, QD
  41. SKELAXIN [Concomitant]
     Dosage: 800 MG, QID
  42. EFFEXOR [Concomitant]
     Dosage: 225 MG, QHS
  43. CHEMOTHERAPEUTICS NOS [Concomitant]
  44. CYMBALTA [Concomitant]
     Dosage: 30 MG
     Dates: end: 20061122
  45. PAROXETINE HCL [Concomitant]
     Dosage: 40 MG
  46. PROZAC [Concomitant]
  47. ELAVIL [Concomitant]
  48. ACYCLOVIR [Concomitant]
  49. TYLENOL [Concomitant]
  50. ALBUTEROL [Concomitant]
  51. WELLBUTRIN [Concomitant]
     Dosage: 200 MG, BID
  52. PROPULSID [Concomitant]
     Dosage: 40 MG, BID
  53. ESTRATEST [Concomitant]
     Dosage: 1 DF
  54. TRAMADOL HCL [Concomitant]
     Dosage: 100 MG, QAM+QPM
  55. TOPRAL [Concomitant]
     Indication: HYPERTENSION
  56. METRONIDAZOLE [Concomitant]
  57. ACTONEL [Concomitant]
  58. CITALOPRAM [Concomitant]
     Dosage: 20 MG
     Dates: start: 20071205
  59. ARANESP [Concomitant]
  60. GLYCOLAX [Concomitant]
  61. CYMBALTA [Concomitant]
     Dosage: 90 MG, QD
     Dates: start: 20061213
  62. ASPIRIN [Concomitant]
  63. ATIVAN [Concomitant]
     Dosage: 1 MG, PRNQ12H
  64. PREVACID [Concomitant]
     Indication: GASTROOESOPHAGEAL REFLUX DISEASE
  65. TRIAMCINOLONE [Concomitant]
  66. PERCOCET [Concomitant]
  67. ULTRAM [Concomitant]
     Dosage: 300 MG, QD
     Route: 048
  68. TIZANIDINE HYDROCHLORIDE [Concomitant]
     Dosage: 4 MG
  69. LORAZEPAM [Concomitant]
     Dosage: 1 MG
  70. AMBIEN [Concomitant]
     Dosage: 6.25 MG
  71. TRIAMTERENE AND HYDROCHLOROTHIAZIDE [Concomitant]
     Dosage: 25 MG
  72. PREDNISONE TAB [Concomitant]
  73. ZOLOFT [Concomitant]
  74. ESTROGEN W/MEDROXYPROGESTERON [Concomitant]
  75. TERAZOSIN HYDROCHLORIDE [Concomitant]
  76. OMEPRAZOLE [Concomitant]
     Dosage: 20 MG, QD
  77. BENICAR [Concomitant]
  78. DIGITALIS [Concomitant]
     Dates: start: 20080201
  79. BENICAR HCT [Concomitant]
     Dosage: 12.5 MG
  80. CHLORHEXIDINE GLUCONATE [Concomitant]
  81. PERIOGARD [Concomitant]
  82. ZELNORM                                 /USA/ [Concomitant]
     Dosage: 6 MG
  83. LEXAPRO [Concomitant]
  84. METOCLOPRAMIDE [Concomitant]
  85. LUNESTA [Concomitant]
     Dosage: 3 MG, BED TIME
  86. AMITIZA [Concomitant]
     Dosage: 24 UG, BID
  87. LIPITOR [Concomitant]
     Dates: start: 20030101
  88. HYDROCHLOROTHIAZIDE [Concomitant]
     Indication: HYPERTENSION
  89. PROVIGIL [Concomitant]
     Indication: FATIGUE
  90. TOPROL-XL [Concomitant]
  91. LIPITOR [Concomitant]
  92. DEXAMETHASONE [Concomitant]
     Dates: start: 20070416
  93. DOXILEK [Concomitant]
  94. PROCHLORPERAZINE [Concomitant]
     Dosage: 10 MG
  95. CYMBALTA [Concomitant]
     Dosage: 60 MG, QD
     Dates: start: 20061123, end: 20061213
  96. HYDROCODONE BITARTRATE [Concomitant]
     Dosage: 500 MG
  97. LITHIUM CARBONATE [Concomitant]
  98. ALDACTONE [Concomitant]
  99. TESSALON [Concomitant]

REACTIONS (95)
  - OSTEONECROSIS OF JAW [None]
  - TOOTH INFECTION [None]
  - ORAL CAVITY FISTULA [None]
  - ECZEMA ASTEATOTIC [None]
  - MUSCULAR WEAKNESS [None]
  - ORTHODONTIC APPLIANCE USER [None]
  - MALNUTRITION [None]
  - INFLAMMATION [None]
  - PLASMACYTOSIS [None]
  - AZOTAEMIA [None]
  - WOUND DEHISCENCE [None]
  - DEHYDRATION [None]
  - TOOTH DISORDER [None]
  - PAIN IN JAW [None]
  - PURULENT DISCHARGE [None]
  - BONE LOSS [None]
  - MITRAL VALVE PROLAPSE [None]
  - ARTHRITIS [None]
  - ECZEMA [None]
  - GINGIVAL RECESSION [None]
  - ORAL FIBROMA [None]
  - ABDOMINAL PAIN UPPER [None]
  - CARDIAC FAILURE CONGESTIVE [None]
  - PAIN [None]
  - HYPOPHAGIA [None]
  - EMOTIONAL DISTRESS [None]
  - ICHTHYOSIS [None]
  - ANAEMIA [None]
  - PERIODONTAL DISEASE [None]
  - CONGESTIVE CARDIOMYOPATHY [None]
  - TACHYCARDIA [None]
  - BONE LESION [None]
  - BACTERAEMIA [None]
  - SWELLING [None]
  - PARAESTHESIA ORAL [None]
  - SKIN DISORDER [None]
  - MULTIPLE MYELOMA [None]
  - POSTMENOPAUSAL HAEMORRHAGE [None]
  - NECK INJURY [None]
  - SKIN FIBROSIS [None]
  - NODULE [None]
  - FLUID OVERLOAD [None]
  - HYPOVOLAEMIA [None]
  - OESOPHAGEAL MUCOSAL HYPERPLASIA [None]
  - NAUSEA [None]
  - POLYURIA [None]
  - IMPAIRED HEALING [None]
  - BONE EROSION [None]
  - DIVERTICULUM [None]
  - RASH [None]
  - OROPHARYNGEAL PAIN [None]
  - PYREXIA [None]
  - RETCHING [None]
  - DENTAL FISTULA [None]
  - NEUROPATHY PERIPHERAL [None]
  - EJECTION FRACTION DECREASED [None]
  - TOOTH LOSS [None]
  - BONE FRAGMENTATION [None]
  - GASTROOESOPHAGEAL REFLUX DISEASE [None]
  - UTERINE LEIOMYOMA [None]
  - HYPERKERATOSIS [None]
  - PRURITUS [None]
  - JOINT EFFUSION [None]
  - OEDEMA PERIPHERAL [None]
  - ACTINOMYCOSIS [None]
  - MUCOSAL INFLAMMATION [None]
  - ORAL MUCOSA ATROPHY [None]
  - BONE DISORDER [None]
  - TOOTH FRACTURE [None]
  - ANGIOPATHY [None]
  - ANXIETY [None]
  - DERMATITIS [None]
  - VIITH NERVE PARALYSIS [None]
  - PALMAR-PLANTAR ERYTHRODYSAESTHESIA SYNDROME [None]
  - RENAL FAILURE [None]
  - FALL [None]
  - JAW FRACTURE [None]
  - ABDOMINAL PAIN [None]
  - CONSTIPATION [None]
  - COUGH [None]
  - LYMPHOCYTE COUNT DECREASED [None]
  - SKIN ULCER [None]
  - LOOSE TOOTH [None]
  - EXCESSIVE GRANULATION TISSUE [None]
  - DEFORMITY [None]
  - ANHEDONIA [None]
  - FIBROUS HISTIOCYTOMA [None]
  - HYPERTENSION [None]
  - DIARRHOEA [None]
  - TONGUE COATED [None]
  - HALLUCINATION, AUDITORY [None]
  - PATHOLOGICAL FRACTURE [None]
  - SPINAL OSTEOARTHRITIS [None]
  - SPINAL COLUMN STENOSIS [None]
  - COGNITIVE DISORDER [None]
